FAERS Safety Report 17057847 (Version 1)
Quarter: 2019Q4

REPORT INFORMATION
  Report Type: Spontaneous
  Country: US (occurrence: US)
  Receive Date: 20191022
  Receipt Date: 20191022
  Transmission Date: 20200122
  Serious: Yes (Death)
  Sender: FDA-Public Use
  Company Number: None

PATIENT
  Age: 78 Year
  Sex: Male

DRUGS (1)
  1. DASATINIB. [Suspect]
     Active Substance: DASATINIB
     Indication: CHRONIC MYELOID LEUKAEMIA
     Route: 048
     Dates: start: 20190712, end: 20190812

REACTIONS (7)
  - Urinary tract infection [None]
  - Pancytopenia [None]
  - Anaemia [None]
  - Systemic candida [None]
  - Disease complication [None]
  - Thrombocytopenia [None]
  - Leukopenia [None]

NARRATIVE: CASE EVENT DATE: 20190722
